FAERS Safety Report 5149773-3 (Version None)
Quarter: 2006Q4

REPORT INFORMATION
  Report Type: 
  Country: None (occurrence: None)
  Receive Date: 20061113
  Receipt Date: 20061031
  Transmission Date: 20070319
  Serious: Yes (Hospitalization)
  Sender: FDA-Public Use
  Company Number: FR-ELI_LILLY_AND_COMPANY-FR200610005342

PATIENT
  Age: 70 Year
  Sex: Male

DRUGS (5)
  1. UMULINE NPH [Suspect]
     Dosage: 45 IU, 2/D
     Route: 058
     Dates: end: 20061009
  2. UMULINE REGULAR [Suspect]
     Indication: DIABETES MELLITUS
     Dosage: 25 IU, 2/D
     Route: 058
     Dates: end: 20061009
  3. HYTACAND [Concomitant]
     Indication: HYPERTENSION
     Dosage: 16 MG, DAILY (1/D)
     Route: 048
     Dates: end: 20061006
  4. PREVISCAN [Concomitant]
     Dosage: UNK, 3/D
  5. TOPALGIC [Concomitant]
     Dosage: UNK, 3/D

REACTIONS (4)
  - FALL [None]
  - HYPOGLYCAEMIA [None]
  - HYPOTENSION [None]
  - MALAISE [None]
